FAERS Safety Report 4499214-4 (Version None)
Quarter: 2004Q4

REPORT INFORMATION
  Report Type: 
  Country: None (occurrence: None)
  Receive Date: 20041111
  Receipt Date: 20040928
  Transmission Date: 20050328
  Serious: No
  Sender: FDA-Public Use
  Company Number: ES-GLAXOSMITHKLINE-B0347088A

PATIENT
  Age: 26 Year
  Sex: Male

DRUGS (6)
  1. AUGMENTIN '125' [Suspect]
     Indication: RESPIRATORY TRACT INFECTION
     Dosage: 500MG THREE TIMES PER DAY
     Route: 048
  2. VOLTAREN [Concomitant]
     Dosage: 100MG THREE TIMES PER DAY
  3. PHENOBARBITAL TAB [Concomitant]
     Dosage: 100MG PER DAY
  4. LARGACTIL [Concomitant]
     Dosage: 4TAB PER DAY
  5. TERMALGIN [Concomitant]
  6. TEGRETOL [Concomitant]
     Dosage: 4TAB PER DAY

REACTIONS (2)
  - CONVULSION [None]
  - PHARMACEUTICAL PRODUCT COMPLAINT [None]
